FAERS Safety Report 24368944 (Version 1)
Quarter: 2024Q3

REPORT INFORMATION
  Report Type: Spontaneous
  Country: US (occurrence: US)
  Receive Date: 20240927
  Receipt Date: 20240927
  Transmission Date: 20241017
  Serious: Yes (Other)
  Sender: BRISTOL MYERS SQUIBB
  Company Number: US-BRISTOL-MYERS SQUIBB COMPANY-2024-152237

PATIENT
  Age: 87 Year
  Sex: Female
  Weight: 79.38 kg

DRUGS (3)
  1. ELIQUIS [Suspect]
     Active Substance: APIXABAN
     Indication: Product used for unknown indication
  2. METHYLPREDNISOLONE [Suspect]
     Active Substance: METHYLPREDNISOLONE
     Indication: Arthritis
     Dosage: TOOK TWO 4MG TABLETS IN MORNING
     Dates: start: 20240919
  3. METHYLPREDNISOLONE [Suspect]
     Active Substance: METHYLPREDNISOLONE
     Dates: start: 20240920

REACTIONS (6)
  - Arthritis [Unknown]
  - Diplopia [Recovered/Resolved]
  - Limb injury [Unknown]
  - Eye pain [Unknown]
  - Transient ischaemic attack [Unknown]
  - Dyskinesia [Unknown]

NARRATIVE: CASE EVENT DATE: 20240801
